FAERS Safety Report 14699491 (Version 1)
Quarter: 2018Q1

REPORT INFORMATION
  Report Type: Spontaneous
  Country: FR (occurrence: FR)
  Receive Date: 20180330
  Receipt Date: 20180330
  Transmission Date: 20180509
  Serious: Yes (Other)
  Sender: FDA-Public Use
  Company Number: FR-AMGEN-FRASP2018040349

PATIENT
  Age: 23 Year
  Sex: Female
  Weight: 68 kg

DRUGS (7)
  1. ACICLOVIR MYLAN [Suspect]
     Active Substance: ACYCLOVIR
     Indication: HERPES VIRUS INFECTION
     Route: 042
     Dates: start: 20170824, end: 20170907
  2. LUTERAN [Concomitant]
     Active Substance: CHLORMADINONE ACETATE
     Dosage: UNK, QD (ONE TABLET PER DAY)
  3. FOSCAVIR [Suspect]
     Active Substance: FOSCARNET SODIUM
     Indication: HERPES VIRUS INFECTION
     Route: 042
     Dates: start: 20170907, end: 20170915
  4. CANCIDAS [Suspect]
     Active Substance: CASPOFUNGIN ACETATE
     Indication: CANDIDA INFECTION
     Dosage: 70 MG, UNK (THEN 35 MG/DAY)
     Route: 042
     Dates: start: 20170830, end: 20170915
  5. CEFTAZIDIME MYLAN [Suspect]
     Active Substance: CEFTAZIDIME
     Indication: ESCHERICHIA SEPSIS
     Dosage: THEN FROM 25-AUG-2017 TO 15-SEP-2017
     Route: 042
     Dates: start: 20170821, end: 20170823
  6. RITUXIMAB. [Concomitant]
     Active Substance: RITUXIMAB
  7. BLINCYTO [Suspect]
     Active Substance: BLINATUMOMAB
     Indication: ACUTE LYMPHOCYTIC LEUKAEMIA
     Dosage: UNK
     Route: 042

REACTIONS (2)
  - Cholestasis [Not Recovered/Not Resolved]
  - Hyperbilirubinaemia [Recovered/Resolved]

NARRATIVE: CASE EVENT DATE: 20170915
